FAERS Safety Report 15220293 (Version 1)
Quarter: 2018Q3

REPORT INFORMATION
  Report Type: Spontaneous
  Country: US (occurrence: US)
  Receive Date: 20180731
  Receipt Date: 20180731
  Transmission Date: 20181010
  Serious: Yes (Other)
  Sender: FDA-Public Use
  Company Number: US-APOPHARMA USA, INC.-2018AP017733

PATIENT
  Age: 37 Year
  Sex: Male

DRUGS (4)
  1. ALKERAN [Suspect]
     Active Substance: MELPHALAN
     Indication: STEM CELL TRANSPLANT
     Dosage: 140 MG/M2, UNKNOWN
     Route: 065
     Dates: start: 201410, end: 201410
  2. BUSULFAN. [Suspect]
     Active Substance: BUSULFAN
     Indication: STEM CELL TRANSPLANT
     Dosage: 0.8 MG/KG, Q.6H
     Route: 042
     Dates: start: 201410, end: 201410
  3. ETOPOSIDE. [Suspect]
     Active Substance: ETOPOSIDE
     Indication: STEM CELL TRANSPLANT
     Dosage: 400 MG/M2, QD
     Route: 042
     Dates: start: 201507, end: 201507
  4. ALKERAN [Suspect]
     Active Substance: MELPHALAN
     Dosage: 100 MG/M2, SINGLE
     Route: 042
     Dates: start: 201507, end: 201507

REACTIONS (5)
  - Liver function test increased [Recovered/Resolved]
  - Mucosal inflammation [Unknown]
  - Febrile neutropenia [Unknown]
  - Clostridium difficile colitis [Unknown]
  - Mucosal inflammation [Recovered/Resolved]
